FAERS Safety Report 4655872-2 (Version None)
Quarter: 2005Q2

REPORT INFORMATION
  Report Type: 
  Country: None (occurrence: None)
  Receive Date: 20050505
  Receipt Date: 20050429
  Transmission Date: 20051028
  Serious: Yes (Death)
  Sender: FDA-Public Use
  Company Number: A044-002-005581

PATIENT
  Age: 74 Year
  Sex: Male

DRUGS (5)
  1. ARICEPT [Suspect]
     Indication: DEMENTIA ALZHEIMER'S TYPE
     Dosage: 10 MG, 1 IN 1 D, ORAL
     Route: 048
     Dates: start: 20040301, end: 20050305
  2. WARFARIN SODIUM [Suspect]
     Indication: CARDIOMYOPATHY
     Dosage: 2.5 MG , ORAL
     Route: 048
     Dates: end: 20050301
  3. CORDARONE [Suspect]
     Indication: CARDIOMYOPATHY
     Dosage: 200 MG, 1 IN 1 D, ORAL
     Route: 048
  4. ALDACTONE [Concomitant]
  5. BUMETANIDE [Concomitant]

REACTIONS (6)
  - GENERAL PHYSICAL HEALTH DETERIORATION [None]
  - HEPATOCELLULAR DAMAGE [None]
  - ORAL INTAKE REDUCED [None]
  - ORGAN FAILURE [None]
  - PYREXIA [None]
  - RENAL FAILURE [None]
